FAERS Safety Report 12777491 (Version 1)
Quarter: 2016Q3

REPORT INFORMATION
  Report Type: Spontaneous
  Country: US (occurrence: US)
  Receive Date: 20160924
  Receipt Date: 20160924
  Transmission Date: 20161109
  Serious: No
  Sender: FDA-Public Use
  Company Number: US-TEVA-614542USA

PATIENT
  Sex: Female

DRUGS (1)
  1. CLONAZEPAM. [Suspect]
     Active Substance: CLONAZEPAM
     Indication: SLEEP DISORDER
     Dosage: 0.5
     Route: 065

REACTIONS (5)
  - Somnolence [Unknown]
  - Off label use [Unknown]
  - Product use issue [Unknown]
  - Dry throat [Unknown]
  - Dry mouth [Unknown]
